FAERS Safety Report 9275321 (Version 3)
Quarter: 2013Q4

REPORT INFORMATION
  Report Type: Report from Study
  Country: IT (occurrence: IT)
  Receive Date: 20130507
  Receipt Date: 20131022
  Transmission Date: 20140711
  Serious: Yes (Hospitalization)
  Sender: FDA-Public Use
  Company Number: IT-ROCHE-1219211

PATIENT
  Age: 50 Year
  Sex: Female
  Weight: 67 kg

DRUGS (7)
  1. TRASTUZUMAB [Suspect]
     Indication: BREAST CANCER
     Dosage: LOADING DOSE
     Route: 042
     Dates: start: 20130327
  2. TRASTUZUMAB [Suspect]
     Dosage: LAST DOSE PRIOR TO EVENT 17/APR/2013
     Route: 042
  3. TRASTUZUMAB [Suspect]
     Route: 042
     Dates: start: 20130515
  4. DOCETAXEL [Suspect]
     Indication: BREAST CANCER
     Dosage: LAST DOSE PRIOR TO EVENT 17/APR/2013
     Route: 042
     Dates: start: 20130327, end: 20130417
  5. LERCANIDIPINE [Concomitant]
     Route: 065
     Dates: start: 2006
  6. PERTUZUMAB [Suspect]
     Indication: BREAST CANCER
     Dosage: LOADING DOSE
     Route: 042
     Dates: start: 20130327
  7. PERTUZUMAB [Suspect]
     Dosage: LAST DOSE PRIOR TO EVENT 17/APR/2013
     Route: 042

REACTIONS (1)
  - Troponin increased [Recovered/Resolved]
